FAERS Safety Report 18381653 (Version 8)
Quarter: 2022Q3

REPORT INFORMATION
  Report Type: Report from Study
  Country: CA (occurrence: CA)
  Receive Date: 20201014
  Receipt Date: 20220718
  Transmission Date: 20221026
  Serious: Yes (Death, Hospitalization, Disabling)
  Sender: FDA-Public Use
  Company Number: CA-JNJFOC-20201010079

PATIENT
  Age: 57 Year
  Sex: Male

DRUGS (2)
  1. REMICADE [Suspect]
     Active Substance: INFLIXIMAB
     Indication: Crohn^s disease
     Route: 042
     Dates: start: 20081001, end: 202104
  2. REMICADE [Suspect]
     Active Substance: INFLIXIMAB
     Dosage: PATIENT RETURNED FOR REMICADE INFUSION ON 31-AUG-2021 AFTER BEING OFF REMICADE SINCE APRIL.
     Route: 042
     Dates: start: 20210831, end: 20220317

REACTIONS (3)
  - Lip and/or oral cavity cancer [Fatal]
  - Tongue cancer recurrent [Not Recovered/Not Resolved]
  - Hypertension [Not Recovered/Not Resolved]

NARRATIVE: CASE EVENT DATE: 20201006
